FAERS Safety Report 6358323-5 (Version None)
Quarter: 2009Q3

REPORT INFORMATION
  Report Type: 
  Country: None (occurrence: None)
  Receive Date: 20090916
  Receipt Date: 20090914
  Transmission Date: 20100115
  Serious: Yes (Death)
  Sender: FDA-Public Use
  Company Number: PHFR2003GB02518

PATIENT
  Sex: Male

DRUGS (4)
  1. CLOZARIL [Suspect]
     Route: 048
     Dates: start: 20030515
  2. BENZHEXOL [Concomitant]
     Indication: EXTRAPYRAMIDAL DISORDER
     Dosage: ONCE DAILY
     Route: 048
     Dates: start: 20030101
  3. DEPAKOTE [Concomitant]
     Indication: MANIA
     Dosage: ONCE DAILY
     Route: 048
     Dates: start: 20020101, end: 20030515
  4. RISPERDAL [Concomitant]
     Dosage: ONCE DAILY
     Route: 048
     Dates: start: 20020101, end: 20030516

REACTIONS (5)
  - ARTERITIS [None]
  - EOSINOPHILIC MYOCARDITIS [None]
  - FLUID RETENTION [None]
  - PULMONARY OEDEMA [None]
  - WHITE BLOOD CELL COUNT INCREASED [None]
